FAERS Safety Report 13468507 (Version 1)
Quarter: 2017Q2

REPORT INFORMATION
  Report Type: Spontaneous
  Country: IT (occurrence: IT)
  Receive Date: 20170421
  Receipt Date: 20170421
  Transmission Date: 20170830
  Serious: Yes (Death)
  Sender: FDA-Public Use
  Company Number: IT-FRESENIUS KABI-FK201703292

PATIENT
  Age: 59 Year
  Sex: Male

DRUGS (2)
  1. VANCOMYCIN (MANUFACTURER UNKNOWN) [Suspect]
     Active Substance: VANCOMYCIN
     Indication: PNEUMONIA BACTERIAL
     Route: 042
  2. CEFTRIAXON (MANUFACTURER UNKNOWN) [Suspect]
     Active Substance: CEFTRIAXONE
     Indication: PNEUMONIA BACTERIAL
     Route: 042

REACTIONS (7)
  - Osteomyelitis [Fatal]
  - Respiratory arrest [Fatal]
  - Paralysis [Fatal]
  - Pneumonia bacterial [Fatal]
  - Central nervous system infection [Fatal]
  - Arthritis bacterial [Fatal]
  - Pathogen resistance [Fatal]
